FAERS Safety Report 12920090 (Version 1)
Quarter: 2016Q4

REPORT INFORMATION
  Report Type: Spontaneous
  Country: US (occurrence: US)
  Receive Date: 20161104
  Receipt Date: 20161104
  Transmission Date: 20170207
  Serious: Yes (Other)
  Sender: FDA-Public Use
  Company Number: None

PATIENT
  Age: 67 Year
  Sex: Female
  Weight: 112.5 kg

DRUGS (9)
  1. PRAVASTATIN. [Concomitant]
     Active Substance: PRAVASTATIN
  2. VIT D-3 [Concomitant]
  3. FISH OIL [Concomitant]
     Active Substance: FISH OIL
  4. LOW DOSE ASPIRIN [Concomitant]
     Active Substance: ASPIRIN
  5. ATENOLOL. [Concomitant]
     Active Substance: ATENOLOL
  6. VENLAFAFINE 37.5 ZYGENERICS [Suspect]
     Active Substance: VENLAFAXINE HYDROCHLORIDE
     Indication: ANTIDEPRESSANT THERAPY
     Dosage: ?          QUANTITY:1 TABLET(S);?
     Route: 048
  7. COUMADIN [Suspect]
     Active Substance: WARFARIN SODIUM
  8. VITAMIN E [Concomitant]
     Active Substance: .ALPHA.-TOCOPHEROL
  9. MULTI VITAMIN [Concomitant]
     Active Substance: VITAMINS

REACTIONS (4)
  - Arthralgia [None]
  - Joint swelling [None]
  - Carpal tunnel syndrome [None]
  - Muscle disorder [None]

NARRATIVE: CASE EVENT DATE: 20160711
